FAERS Safety Report 7414555-6 (Version None)
Quarter: 2011Q2

REPORT INFORMATION
  Report Type: 
  Country: None (occurrence: None)
  Receive Date: 20110414
  Receipt Date: 20110407
  Transmission Date: 20111010
  Serious: Yes (Death)
  Sender: FDA-Public Use
  Company Number: CA-NOVOPROD-326439

PATIENT
  Age: 72 Year
  Sex: Male

DRUGS (2)
  1. NIASTASE [Suspect]
     Indication: HAEMORRHAGE
     Dosage: UNK
     Route: 065
  2. NIASTASE [Suspect]
     Indication: HAEMORRHAGE
     Dosage: 6MG EVERY 2HRS FOR ABOUT A WEEK
     Route: 065

REACTIONS (1)
  - DEATH [None]
